FAERS Safety Report 5017381-0 (Version None)
Quarter: 2006Q2

REPORT INFORMATION
  Report Type: 
  Country: None (occurrence: None)
  Receive Date: 20060601
  Receipt Date: 20060601
  Transmission Date: 20061013
  Serious: Yes (Hospitalization)
  Sender: FDA-Public Use
  Company Number: None

PATIENT
  Age: 33 Year
  Sex: Male
  Weight: 74.3 kg

DRUGS (5)
  1. DIVALPROEX [Suspect]
     Indication: PANIC DISORDER
     Dosage: 2000MG, TAKE 200, ORAL
     Route: 048
     Dates: start: 20051101, end: 20051115
  2. DIAZEPAM [Concomitant]
  3. CITALOPRAM HYDROBROMIDE [Concomitant]
  4. DIVALPROEX  EC (DELAYED RELEASE) [Concomitant]
  5. MULTI-VITAMIN [Concomitant]

REACTIONS (2)
  - DELIRIUM [None]
  - DELUSION [None]
